FAERS Safety Report 9635178 (Version 3)
Quarter: 2013Q4

REPORT INFORMATION
  Report Type: Spontaneous
  Country: DE (occurrence: DE)
  Receive Date: 20131021
  Receipt Date: 20131030
  Transmission Date: 20140711
  Serious: Yes (Hospitalization, Other)
  Sender: FDA-Public Use
  Company Number: DE-PFIZER INC-2013297334

PATIENT
  Age: 55 Year
  Sex: Male
  Weight: 66 kg

DRUGS (3)
  1. INLYTA [Suspect]
     Indication: METASTATIC RENAL CELL CARCINOMA
     Dosage: 25 MG, 2X/DAY
     Route: 048
  2. INLYTA [Suspect]
     Dosage: 5 MG, 1X/DAY
     Route: 048
  3. INLYTA [Suspect]
     Dosage: 5 MG, 2X/DAY
     Route: 048

REACTIONS (7)
  - Off label use [Unknown]
  - Pneumonia fungal [Not Recovered/Not Resolved]
  - Pneumonia fungal [Not Recovered/Not Resolved]
  - Infection [Unknown]
  - General physical health deterioration [Unknown]
  - Disease progression [Unknown]
  - Metastatic renal cell carcinoma [Unknown]
